FAERS Safety Report 6420269-1 (Version None)
Quarter: 2009Q4

REPORT INFORMATION
  Report Type: 
  Country: None (occurrence: None)
  Receive Date: 20091029
  Receipt Date: 20091016
  Transmission Date: 20100525
  Serious: Yes (Disabling)
  Sender: FDA-Public Use
  Company Number: AU-ROCHE-658727

PATIENT
  Sex: Male
  Weight: 68 kg

DRUGS (1)
  1. PEGASYS [Suspect]
     Indication: HEPATITIS C
     Dosage: S/C PEGASYS 180MCG/WK, ORAL RIBAVIRIN 1000MG
     Route: 050
     Dates: start: 20090903, end: 20090918

REACTIONS (1)
  - SKIN ULCER [None]
